FAERS Safety Report 8520824 (Version 6)
Quarter: 2014Q1

REPORT INFORMATION
  Report Type: Spontaneous
  Country: US (occurrence: US)
  Receive Date: 20120419
  Receipt Date: 20140131
  Transmission Date: 20141002
  Serious: Yes (Other)
  Sender: FDA-Public Use
  Company Number: US-ASTRAZENECA-2011SE32246

PATIENT
  Age: 52 Year
  Sex: Female
  Weight: 72.6 kg

DRUGS (13)
  1. NEXIUM [Suspect]
     Indication: GASTROOESOPHAGEAL REFLUX DISEASE
     Route: 048
     Dates: start: 20020318
  2. NEXIUM [Suspect]
     Indication: GASTROOESOPHAGEAL REFLUX DISEASE
     Route: 048
     Dates: start: 20030312
  3. NEXIUM [Suspect]
     Indication: GASTROOESOPHAGEAL REFLUX DISEASE
     Route: 048
     Dates: start: 2004, end: 2009
  4. ACIPHEX [Concomitant]
     Indication: GASTROOESOPHAGEAL REFLUX DISEASE
  5. ZANTAC [Concomitant]
     Dates: start: 2004
  6. VITAMIN D [Concomitant]
     Indication: OSTEOPENIA
     Dosage: DAILY
  7. CALCIUM [Concomitant]
     Indication: OSTEOPENIA
     Dosage: DAILY
  8. FLONASE [Concomitant]
     Indication: MULTIPLE ALLERGIES
  9. NORVASC [Concomitant]
     Indication: BLOOD PRESSURE
  10. ASCORBIC ACID [Concomitant]
     Route: 048
  11. CHOLECALCIFEROL [Concomitant]
     Dosage: 50000 UNIT
     Dates: start: 20091231
  12. OMEPRAZOLE [Concomitant]
     Dates: start: 20080311
  13. FAMOTIDINE [Concomitant]
     Dates: start: 20060604

REACTIONS (8)
  - Tibia fracture [Unknown]
  - Fibula fracture [Unknown]
  - Ankle fracture [Unknown]
  - Osteoporosis [Unknown]
  - Osteopenia [Unknown]
  - Vitamin D deficiency [Unknown]
  - Joint swelling [Unknown]
  - Gait disturbance [Unknown]
